FAERS Safety Report 9850186 (Version 2)
Quarter: 2014Q1

REPORT INFORMATION
  Report Type: Spontaneous
  Country: SE (occurrence: SE)
  Receive Date: 20140128
  Receipt Date: 20140226
  Transmission Date: 20141002
  Serious: Yes (Hospitalization)
  Sender: FDA-Public Use
  Company Number: SE-GLAXOSMITHKLINE-B0963964A

PATIENT
  Age: 60 Year
  Sex: Female

DRUGS (1)
  1. ALLI [Suspect]
     Indication: PRODUCT USED FOR UNKNOWN INDICATION
     Route: 065
     Dates: start: 20140109, end: 20140110

REACTIONS (5)
  - Swelling face [Recovered/Resolved]
  - Overdose [Unknown]
  - Product quality issue [Unknown]
  - Swelling face [Recovered/Resolved]
  - Eyelid oedema [Recovered/Resolved]
